FAERS Safety Report 11424109 (Version 3)
Quarter: 2016Q3

REPORT INFORMATION
  Report Type: Spontaneous
  Country: JP (occurrence: JP)
  Receive Date: 20150827
  Receipt Date: 20160922
  Transmission Date: 20161109
  Serious: Yes (Death, Hospitalization)
  Sender: FDA-Public Use
  Company Number: JP-ASTRAZENECA-2013SE87674

PATIENT
  Age: 26970 Day
  Sex: Female
  Weight: 52 kg

DRUGS (15)
  1. IRESSA [Suspect]
     Active Substance: GEFITINIB
     Indication: NON-SMALL CELL LUNG CANCER
     Route: 048
     Dates: start: 201207, end: 20121125
  2. LAC-B [Suspect]
     Active Substance: BIFIDOBACTERIUM SPP.
     Indication: DIARRHOEA
     Route: 048
     Dates: start: 20121106, end: 20121116
  3. DAONIL [Concomitant]
     Active Substance: GLYBURIDE
     Indication: DIABETES MELLITUS
     Route: 048
  4. EUGLUCON [Concomitant]
     Active Substance: GLYBURIDE
  5. RINLAXER [Concomitant]
     Active Substance: CHLORPHENESIN CARBAMATE
  6. ISALON [Concomitant]
     Active Substance: UNSPECIFIED INGREDIENT
  7. IRESSA [Suspect]
     Active Substance: GEFITINIB
     Indication: NON-SMALL CELL LUNG CANCER
     Route: 048
     Dates: start: 201201, end: 201207
  8. DEPAS [Concomitant]
     Active Substance: ETIZOLAM
     Indication: INSOMNIA
     Route: 048
  9. LOXONIN [Concomitant]
     Active Substance: LOXOPROFEN SODIUM
  10. ALINAMIN F [Concomitant]
     Active Substance: FURSULTIAMINE HYDROCHLORIDE
  11. IRESSA [Suspect]
     Active Substance: GEFITINIB
     Indication: NON-SMALL CELL LUNG CANCER
     Route: 048
     Dates: start: 20110531, end: 201201
  12. ERYTHROCIN [Suspect]
     Active Substance: ERYTHROMYCIN LACTOBIONATE
     Indication: BRONCHITIS CHRONIC
     Route: 048
     Dates: start: 20111125, end: 20121125
  13. MUCODYNE [Suspect]
     Active Substance: CARBOCYSTEINE
     Indication: BRONCHITIS CHRONIC
     Route: 048
     Dates: start: 20120127, end: 20121125
  14. PERDIPINE LA [Concomitant]
     Indication: HYPERTENSION
     Route: 048
  15. HYPADIL [Concomitant]
     Active Substance: NIPRADILOL
     Indication: HYPERTENSION
     Route: 048

REACTIONS (6)
  - Diarrhoea [Recovered/Resolved]
  - Interstitial lung disease [Fatal]
  - Dermatitis acneiform [Not Recovered/Not Resolved]
  - Lung disorder [Unknown]
  - Paronychia [Not Recovered/Not Resolved]
  - Rash [Recovering/Resolving]

NARRATIVE: CASE EVENT DATE: 20110708
